FAERS Safety Report 12325405 (Version 1)
Quarter: 2016Q2

REPORT INFORMATION
  Report Type: Spontaneous
  Country: PE (occurrence: PE)
  Receive Date: 20160502
  Receipt Date: 20160502
  Transmission Date: 20160815
  Serious: Yes (Death)
  Sender: FDA-Public Use
  Company Number: PE-NOVOPROD-489751

PATIENT
  Age: 92 Year

DRUGS (1)
  1. LEVEMIR [Suspect]
     Active Substance: INSULIN DETEMIR
     Indication: PRODUCT USED FOR UNKNOWN INDICATION
     Dosage: 20 IU, QD
     Route: 058
     Dates: start: 20150417

REACTIONS (3)
  - Cardiac arrest [Fatal]
  - Renal impairment [Fatal]
  - Infection [Fatal]

NARRATIVE: CASE EVENT DATE: 20160223
